FAERS Safety Report 5333673-X (Version None)
Quarter: 2007Q2

REPORT INFORMATION
  Report Type: 
  Country: None (occurrence: None)
  Receive Date: 20070524
  Receipt Date: 20070522
  Transmission Date: 20071010
  Serious: Yes (Death, Congenital Anomaly)
  Sender: FDA-Public Use
  Company Number: A0652497A

PATIENT
  Sex: Male

DRUGS (1)
  1. PAXIL CR [Suspect]

REACTIONS (4)
  - CONGENITAL PULMONARY VALVE DISORDER [None]
  - DEATH [None]
  - DRUG EXPOSURE DURING PREGNANCY [None]
  - FALLOT'S TETRALOGY [None]
